FAERS Safety Report 16108608 (Version 1)
Quarter: 2019Q1

REPORT INFORMATION
  Report Type: Spontaneous
  Country: GH (occurrence: GH)
  Receive Date: 20190323
  Receipt Date: 20190323
  Transmission Date: 20190418
  Serious: Yes (Other)
  Sender: FDA-Public Use
  Company Number: GH-ACCORD-114214

PATIENT
  Age: 22 Year
  Sex: Male

DRUGS (7)
  1. FUROSEMIDE. [Concomitant]
     Active Substance: FUROSEMIDE
     Indication: HYPERTENSION
  2. PREDNISOLONE. [Suspect]
     Active Substance: PREDNISOLONE
     Indication: LUPUS NEPHRITIS
  3. MYCOPHENOLIC ACID. [Suspect]
     Active Substance: MYCOPHENOLIC ACID
     Indication: LUPUS NEPHRITIS
     Route: 048
  4. HYDROXYCHLOROQUINE [Concomitant]
     Active Substance: HYDROXYCHLOROQUINE
     Indication: ARTHRALGIA
  5. METHOTREXATE/METHOTREXATE SODIUM [Concomitant]
     Indication: ARTHRALGIA
  6. NIFEDIPINE. [Concomitant]
     Active Substance: NIFEDIPINE
     Indication: HYPERTENSION
  7. CARVEDILOL/CARVEDILOL HYDROCHLODRIDE [Concomitant]
     Indication: HYPERTENSION

REACTIONS (6)
  - Post herpetic neuralgia [Recovering/Resolving]
  - Dyspepsia [Recovering/Resolving]
  - Ophthalmic herpes zoster [Recovered/Resolved]
  - Urinary tract infection bacterial [Recovered/Resolved]
  - Acne [Recovered/Resolved]
  - Oropharyngeal candidiasis [Recovered/Resolved]
